FAERS Safety Report 7260018-0 (Version None)
Quarter: 2011Q1

REPORT INFORMATION
  Report Type: 
  Country: None (occurrence: None)
  Receive Date: 20110130
  Receipt Date: 20100916
  Transmission Date: 20110831
  Serious: No
  Sender: FDA-Public Use
  Company Number: US-ABBOTT-10P-163-0671526-00

PATIENT
  Age: 59 Year
  Sex: Female

DRUGS (3)
  1. NADOLOL [Concomitant]
     Indication: PALPITATIONS
     Route: 048
  2. REMACORT INHALER [Concomitant]
     Indication: PRODUCT USED FOR UNKNOWN INDICATION
  3. HUMIRA [Suspect]
     Indication: RHEUMATOID ARTHRITIS
     Dates: start: 20050101

REACTIONS (3)
  - NASOPHARYNGITIS [None]
  - SINUS CONGESTION [None]
  - FATIGUE [None]
